FAERS Safety Report 13776875 (Version 1)
Quarter: 2017Q3

REPORT INFORMATION
  Report Type: Spontaneous
  Country: US (occurrence: US)
  Receive Date: 20170721
  Receipt Date: 20170721
  Transmission Date: 20171127
  Serious: Yes (Other)
  Sender: FDA-Public Use
  Company Number: None

PATIENT
  Age: 47 Year
  Sex: Female
  Weight: 77.4 kg

DRUGS (6)
  1. OMEOPRAZOLE [Concomitant]
     Active Substance: OMEPRAZOLE
  2. RANITIDINE. [Concomitant]
     Active Substance: RANITIDINE
  3. MORPHINE SULFATE ER 20 MG CAP [Suspect]
     Active Substance: MORPHINE SULFATE
     Indication: INTERVERTEBRAL DISC DEGENERATION
     Dosage: ?          OTHER STRENGTH:MG;QUANTITY:60 CAPSULE(S);?
     Route: 048
  4. CARISOPRADOL [Concomitant]
  5. DULUXITINE [Concomitant]
  6. AMITRIPTYLINE [Concomitant]
     Active Substance: AMITRIPTYLINE

REACTIONS (4)
  - Crying [None]
  - Product substitution issue [None]
  - Product quality issue [None]
  - Pain [None]

NARRATIVE: CASE EVENT DATE: 20170708
